FAERS Safety Report 7723302-X (Version None)
Quarter: 2011Q3

REPORT INFORMATION
  Report Type: 
  Country: None (occurrence: None)
  Receive Date: 20110901
  Receipt Date: 20110901
  Transmission Date: 20111222
  Serious: Yes (Hospitalization)
  Sender: FDA-Public Use
  Company Number: None

PATIENT
  Sex: Female
  Weight: 74.842 kg

DRUGS (1)
  1. NARDIL [Suspect]
     Indication: BIPOLAR DISORDER
     Dosage: 90 MG
     Route: 048
     Dates: start: 19850115, end: 20081125

REACTIONS (1)
  - MANIA [None]
